FAERS Safety Report 25865186 (Version 4)
Quarter: 2025Q4

REPORT INFORMATION
  Report Type: Spontaneous
  Country: US (occurrence: US)
  Receive Date: 20250930
  Receipt Date: 20251021
  Transmission Date: 20260117
  Serious: Yes (Death, Hospitalization, Other)
  Sender: DERMARITE INDUSTRIES
  Company Number: US-DERMARITE INDUSTRIES, LLC.-2025-DER-US000048

PATIENT

DRUGS (2)
  1. DERMAFUNGAL [Suspect]
     Active Substance: MICONAZOLE NITRATE
     Indication: Onychomycosis
     Dosage: TWICE DAILY
     Route: 061
     Dates: start: 20250730, end: 20250908
  2. ASPIRIN [Concomitant]
     Active Substance: ASPIRIN
     Indication: Product used for unknown indication
     Dosage: UNK, DAILY

REACTIONS (4)
  - Sepsis [Fatal]
  - Pneumonia aspiration [Not Recovered/Not Resolved]
  - Hypotension [Not Recovered/Not Resolved]
  - Renal failure [Not Recovered/Not Resolved]

NARRATIVE: CASE EVENT DATE: 20250908
